FAERS Safety Report 6295132-X (Version None)
Quarter: 2009Q3

REPORT INFORMATION
  Report Type: 
  Country: None (occurrence: None)
  Receive Date: 20090731
  Receipt Date: 20090731
  Transmission Date: 20100115
  Serious: No
  Sender: FDA-Public Use
  Company Number: None

PATIENT
  Age: 54 Year
  Sex: Female

DRUGS (1)
  1. VENLAFAXINE XR 150MG MCKESSEN [Suspect]
     Indication: DEPRESSION
     Dosage: 150MG II QD PO
     Route: 048
     Dates: start: 20090625, end: 20090626

REACTIONS (3)
  - ILEOSTOMY [None]
  - MEDICATION RESIDUE [None]
  - PRODUCT SUBSTITUTION ISSUE [None]
